FAERS Safety Report 19674929 (Version 1)
Quarter: 2021Q3

REPORT INFORMATION
  Report Type: Spontaneous
  Country: US (occurrence: US)
  Receive Date: 20210809
  Receipt Date: 20210809
  Transmission Date: 20211014
  Serious: Yes (Hospitalization)
  Sender: FDA-Public Use
  Company Number: None

PATIENT
  Age: 83 Year
  Sex: Male
  Weight: 69.4 kg

DRUGS (1)
  1. REGEN?COV [Suspect]
     Active Substance: CASIRIVIMAB\IMDEVIMAB
     Indication: COVID-19
     Route: 042

REACTIONS (8)
  - Chills [None]
  - Wheezing [None]
  - Pyrexia [None]
  - Infusion related reaction [None]
  - Urinary tract infection [None]
  - Mental status changes [None]
  - Oxygen saturation decreased [None]
  - Bacterial infection [None]

NARRATIVE: CASE EVENT DATE: 20210721
